FAERS Safety Report 6911961-0 (Version None)
Quarter: 2010Q3

REPORT INFORMATION
  Report Type: 
  Country: None (occurrence: None)
  Receive Date: 20100806
  Receipt Date: 20071203
  Transmission Date: 20110219
  Serious: No
  Sender: FDA-Public Use
  Company Number: US-PFIZER INC-2005034341

PATIENT
  Sex: Female
  Weight: 81.19 kg

DRUGS (10)
  1. DETROL LA [Suspect]
     Indication: HYPERTONIC BLADDER
     Route: 048
     Dates: start: 20041001
  2. GEODON [Concomitant]
     Indication: MENTAL DISORDER
     Route: 048
     Dates: start: 20020101
  3. LEXAPRO [Concomitant]
     Indication: MENTAL DISORDER
     Route: 048
     Dates: start: 20020101
  4. LEXAPRO [Concomitant]
     Indication: DEPRESSION
  5. LEXAPRO [Concomitant]
     Indication: ANXIETY
  6. LEXAPRO [Concomitant]
     Indication: OBSESSIVE-COMPULSIVE DISORDER
  7. BUSPAR [Concomitant]
     Indication: MENTAL DISORDER
     Route: 048
     Dates: start: 20020101
  8. VALERIANA COMP [Concomitant]
     Indication: SLEEP DISORDER
     Route: 048
     Dates: start: 20050101
  9. OXYBUTYNIN CHLORIDE [Concomitant]
     Route: 048
  10. ORTHO TRI-CYCLEN [Concomitant]
     Indication: CONTRACEPTION

REACTIONS (3)
  - NOCTURIA [None]
  - POLLAKIURIA [None]
  - SOMNOLENCE [None]
